FAERS Safety Report 5507078-2 (Version None)
Quarter: 2007Q4

REPORT INFORMATION
  Report Type: 
  Country: None (occurrence: None)
  Receive Date: 20071102
  Receipt Date: 20071024
  Transmission Date: 20080405
  Serious: Yes (Other)
  Sender: FDA-Public Use
  Company Number: 163-20785-07101410

PATIENT

DRUGS (10)
  1. THALOMID [Suspect]
     Indication: AMYLOIDOSIS
     Dosage: 50 MG TITRATED EVERY 2 WEEKS UP TO 200 MG, NIGHTLY, ORAL
     Route: 048
  2. DEXAMETHASONE TAB [Suspect]
     Indication: AMYLOIDOSIS
     Dosage: 20 MG/M2, D X 4-D PULSE, UP TO 3 PULSES /MONTH
  3. DEXAMETHASONE TAB [Suspect]
     Indication: MULTIPLE MYELOMA
     Dosage: 20 MG/M2, D X 4-D PULSE, UP TO 3 PULSES /MONTH
  4. BACTRIM [Concomitant]
  5. FLUCONAZOLE [Concomitant]
  6. VITAMIN B6 [Concomitant]
  7. DOCUSATE SODIUM (DOCUSATE SODIUM) [Concomitant]
  8. SENNA (SENNA) [Concomitant]
  9. ASPIRIN [Concomitant]
  10. G-CSF (GRANULOCYTE COLONY STIMULATING FACTOR) [Concomitant]

REACTIONS (13)
  - ANXIETY [None]
  - CELLULITIS [None]
  - CONSTIPATION [None]
  - DEEP VEIN THROMBOSIS [None]
  - DRUG INTOLERANCE [None]
  - FATIGUE [None]
  - HYPERGLYCAEMIA [None]
  - MANIA [None]
  - OSTEONECROSIS [None]
  - PNEUMONIA [None]
  - PULMONARY EMBOLISM [None]
  - SINUSITIS [None]
  - TRANSIENT ISCHAEMIC ATTACK [None]
